FAERS Safety Report 25767970 (Version 1)
Quarter: 2025Q3

REPORT INFORMATION
  Report Type: Spontaneous
  Country: US (occurrence: US)
  Receive Date: 20250905
  Receipt Date: 20250905
  Transmission Date: 20251020
  Serious: No
  Sender: DOMPE FARMACEUTICI
  Company Number: US-FARMAPROD-202505-1691

PATIENT
  Sex: Female

DRUGS (20)
  1. OXERVATE [Suspect]
     Active Substance: CENEGERMIN-BKBJ
     Indication: Neurotrophic keratopathy
     Route: 047
     Dates: start: 20250327
  2. COENZYME Q10 [Concomitant]
     Active Substance: DIETARY SUPPLEMENT\UBIDECARENONE
  3. FLAXSEED [Concomitant]
     Active Substance: FLAX SEED
  4. CALCIUM [Concomitant]
     Active Substance: CALCIUM
  5. ACETYLCYSTEINE [Concomitant]
     Active Substance: ACETYLCYSTEINE
  6. REFRESH CELLUVISC [Concomitant]
     Active Substance: CARBOXYMETHYLCELLULOSE SODIUM
  7. WOMEN^S 50 PLUS MULTIVITAMIN [Concomitant]
  8. APPLE CIDER VINEGAR [Concomitant]
     Active Substance: APPLE CIDER VINEGAR
  9. MIRALAX [Concomitant]
     Active Substance: POLYETHYLENE GLYCOL 3350
  10. VITAMIN D3 [Concomitant]
     Active Substance: CHOLECALCIFEROL
  11. VITAMIN C [Concomitant]
     Active Substance: ASCORBIC ACID
  12. VITAMIN A [Concomitant]
     Active Substance: VITAMIN A
  13. CYANOCOBALAMIN\DEXPANTHENOL\NIACINAMIDE\PYRIDOXINE HYDROCHLORIDE\RIBOF [Concomitant]
     Active Substance: CYANOCOBALAMIN\DEXPANTHENOL\NIACINAMIDE\PYRIDOXINE HYDROCHLORIDE\RIBOFLAVIN 5^-PHOSPHATE SODIUM\THIA
  14. METAMUCIL [Concomitant]
     Active Substance: PLANTAGO SEED
  15. FAMOTIDINE [Concomitant]
     Active Substance: FAMOTIDINE
  16. ASPIRIN [Concomitant]
     Active Substance: ASPIRIN
  17. EZETIMIBE [Concomitant]
     Active Substance: EZETIMIBE
  18. SIMVASTATIN [Concomitant]
     Active Substance: SIMVASTATIN
  19. CEQUA [Concomitant]
     Active Substance: CYCLOSPORINE
  20. FISH OIL [Concomitant]
     Active Substance: FISH OIL

REACTIONS (5)
  - Eye pain [Unknown]
  - Ocular discomfort [Recovering/Resolving]
  - Ocular discomfort [Unknown]
  - Foreign body sensation in eyes [Recovering/Resolving]
  - Lacrimation increased [Unknown]
